FAERS Safety Report 8483365-3 (Version None)
Quarter: 2012Q3

REPORT INFORMATION
  Report Type: 
  Country: None (occurrence: None)
  Receive Date: 20120702
  Receipt Date: 20120626
  Transmission Date: 20120928
  Serious: Yes (Death, Other)
  Sender: FDA-Public Use
  Company Number: US-BAXTER-2012BAX009722

PATIENT
  Sex: Male

DRUGS (1)
  1. ARALAST NP [Suspect]
     Route: 042

REACTIONS (2)
  - RESPIRATORY ARREST [None]
  - DEATH [None]
